FAERS Safety Report 17445323 (Version 2)
Quarter: 2020Q1

REPORT INFORMATION
  Report Type: Spontaneous
  Country: US (occurrence: US)
  Receive Date: 20200221
  Receipt Date: 20200305
  Transmission Date: 20200409
  Serious: No
  Sender: FDA-Public Use
  Company Number: US-TEVA-2020-US-1188862

PATIENT
  Age: 66 Year
  Sex: Female

DRUGS (2)
  1. METFORMIN [Concomitant]
     Active Substance: METFORMIN HYDROCHLORIDE
     Indication: DIABETES MELLITUS
     Route: 065
  2. PIOGLITAZONE. [Suspect]
     Active Substance: PIOGLITAZONE
     Route: 065
     Dates: start: 201906

REACTIONS (7)
  - Mastication disorder [Unknown]
  - Rhinorrhoea [Unknown]
  - Dyspnoea [Unknown]
  - Cough [Unknown]
  - Constipation [Unknown]
  - Wheezing [Unknown]
  - Dry throat [Unknown]

NARRATIVE: CASE EVENT DATE: 201907
